FAERS Safety Report 7903222-8 (Version None)
Quarter: 2011Q4

REPORT INFORMATION
  Report Type: 
  Country: None (occurrence: None)
  Receive Date: 20111109
  Receipt Date: 20111106
  Transmission Date: 20120403
  Serious: Yes (Hospitalization)
  Sender: FDA-Public Use
  Company Number: US-TYCO HEALTHCARE/MALLINCKRODT-T201101903

PATIENT
  Sex: Female

DRUGS (3)
  1. MEDROL [Concomitant]
     Indication: PREMEDICATION
     Dosage: 12 HRS PRIOR TO INJECTION
  2. MEDROL [Concomitant]
     Dosage: 2 HRS PRIOR TO INJECTION
  3. OPTIRAY 160 [Suspect]
     Indication: COMPUTERISED TOMOGRAM HEAD
     Dosage: 100 ML, SINGLE
     Route: 042
     Dates: start: 20110926, end: 20110926

REACTIONS (1)
  - HYPERSENSITIVITY [None]
